FAERS Safety Report 14998002 (Version 1)
Quarter: 2018Q2

REPORT INFORMATION
  Report Type: Spontaneous
  Country: US (occurrence: US)
  Receive Date: 20180611
  Receipt Date: 20180611
  Transmission Date: 20180711
  Serious: No
  Sender: FDA-Public Use
  Company Number: US-BAYER-2018-108413

PATIENT
  Age: 93 Year
  Sex: Male
  Weight: 88 kg

DRUGS (4)
  1. HYDRALAZINE [Concomitant]
     Active Substance: HYDRALAZINE HYDROCHLORIDE
  2. METOPROLOL. [Concomitant]
     Active Substance: METOPROLOL
  3. DOXAZOSIN [Concomitant]
     Active Substance: DOXAZOSIN\DOXAZOSIN MESYLATE
  4. LOTRIMIN ULTRA [Suspect]
     Active Substance: BUTENAFINE HYDROCHLORIDE
     Indication: PRURITUS
     Route: 061
     Dates: start: 20180605, end: 20180605

REACTIONS (2)
  - Blood pressure increased [Unknown]
  - Pruritus [Unknown]

NARRATIVE: CASE EVENT DATE: 20180605
